FAERS Safety Report 9385412 (Version 3)
Quarter: 2013Q3

REPORT INFORMATION
  Report Type: Spontaneous
  Country: US (occurrence: US)
  Receive Date: 20130705
  Receipt Date: 20130911
  Transmission Date: 20140515
  Serious: Yes (Hospitalization, Other)
  Sender: FDA-Public Use
  Company Number: US-BAYER-2013-079164

PATIENT
  Age: 24 Year
  Sex: Female
  Weight: 46 kg

DRUGS (5)
  1. MIRENA [Suspect]
     Indication: CONTRACEPTION
     Dosage: 20 MCG/24HR, CONT
     Route: 015
     Dates: start: 201003, end: 201305
  2. WELLBUTRIN [Concomitant]
  3. LAMICTAL [Concomitant]
     Indication: AFFECTIVE DISORDER
     Dosage: 150 MG, UNK
  4. ZOLOFT [Concomitant]
     Indication: DEPRESSION
  5. ZOLOFT [Concomitant]
     Indication: ANXIETY

REACTIONS (5)
  - Convulsion [Not Recovered/Not Resolved]
  - Head injury [None]
  - Traumatic haemorrhage [None]
  - Convulsion [Not Recovered/Not Resolved]
  - Heart rate increased [Not Recovered/Not Resolved]
